FAERS Safety Report 6489650-9 (Version None)
Quarter: 2009Q4

REPORT INFORMATION
  Report Type: 
  Country: None (occurrence: None)
  Receive Date: 20091210
  Receipt Date: 20091203
  Transmission Date: 20100525
  Serious: Yes (Death, Hospitalization)
  Sender: FDA-Public Use
  Company Number: US-ROCHE-672406

PATIENT
  Age: 55 Year
  Sex: Male
  Weight: 84.5 kg

DRUGS (6)
  1. BEVACIZUMAB [Suspect]
     Indication: GLIOBLASTOMA MULTIFORME
     Dosage: 5 MG/KG, Q2W
     Route: 065
     Dates: start: 20091014, end: 20091110
  2. BEVACIZUMAB [Suspect]
     Dosage: 5 MG/KG, Q2W
     Route: 065
     Dates: start: 20091014, end: 20091110
  3. SORAFENIB [Suspect]
     Indication: GLIOBLASTOMA MULTIFORME
     Dosage: 200 MG, QD
     Route: 065
     Dates: start: 20091014, end: 20091115
  4. SORAFENIB [Suspect]
     Dosage: 200 MG, QD
     Route: 065
     Dates: start: 20091014, end: 20091115
  5. SORAFENIB [Suspect]
     Dosage: 200 MG, QOD
     Route: 065
     Dates: end: 20091115
  6. SORAFENIB [Suspect]
     Dosage: 200 MG, QOD
     Route: 065
     Dates: end: 20091115

REACTIONS (4)
  - ABDOMINAL PAIN [None]
  - CONFUSIONAL STATE [None]
  - DEATH [None]
  - ENCEPHALOPATHY [None]
